FAERS Safety Report 5414752-5 (Version None)
Quarter: 2007Q3

REPORT INFORMATION
  Report Type: 
  Country: None (occurrence: None)
  Receive Date: 20070813
  Receipt Date: 20070731
  Transmission Date: 20080115
  Serious: Yes (Other)
  Sender: FDA-Public Use
  Company Number: 17167

PATIENT
  Age: 13 Year
  Sex: Male

DRUGS (5)
  1. METHOTREXATE [Suspect]
     Indication: B PRECURSOR TYPE ACUTE LEUKAEMIA
  2. VINCRISTINE [Suspect]
     Indication: B PRECURSOR TYPE ACUTE LEUKAEMIA
  3. PREDNISONE TAB [Suspect]
     Indication: B PRECURSOR TYPE ACUTE LEUKAEMIA
  4. DAUNORUBICIN HCL [Concomitant]
  5. L-ASPARIGINASE [Concomitant]

REACTIONS (8)
  - BLOOD PRESSURE INCREASED [None]
  - BRAIN OEDEMA [None]
  - CLONUS [None]
  - DRUG TOXICITY [None]
  - GRAND MAL CONVULSION [None]
  - MYDRIASIS [None]
  - REVERSIBLE POSTERIOR LEUKOENCEPHALOPATHY SYNDROME [None]
  - VASCULITIS CEREBRAL [None]
